FAERS Safety Report 15156737 (Version 1)
Quarter: 2018Q3

REPORT INFORMATION
  Report Type: Spontaneous
  Country: US (occurrence: US)
  Receive Date: 20180717
  Receipt Date: 20180717
  Transmission Date: 20181010
  Serious: No
  Sender: FDA-Public Use
  Company Number: US-BAUSCH-BL-2018-004837

PATIENT
  Sex: Male
  Weight: 86.26 kg

DRUGS (1)
  1. XIFAXAN [Suspect]
     Active Substance: RIFAXIMIN
     Indication: ABDOMINAL PAIN UPPER
     Route: 048
     Dates: start: 20180215, end: 20180219

REACTIONS (3)
  - Drug ineffective for unapproved indication [Recovering/Resolving]
  - Off label use [Recovered/Resolved]
  - Abdominal discomfort [Recovering/Resolving]
